FAERS Safety Report 7867796-8 (Version None)
Quarter: 2011Q4

REPORT INFORMATION
  Report Type: 
  Country: None (occurrence: None)
  Receive Date: 20111028
  Receipt Date: 20111020
  Transmission Date: 20120403
  Serious: Yes (Hospitalization, Other)
  Sender: FDA-Public Use
  Company Number: US-BRISTOL-MYERS SQUIBB COMPANY-14011134

PATIENT
  Age: 69 Year
  Sex: Male
  Weight: 70 kg

DRUGS (7)
  1. ENALAPRIL MALEATE [Concomitant]
  2. COUMADIN [Suspect]
  3. CISPLATIN [Suspect]
     Indication: HEAD AND NECK CANCER
     Dosage: STARTED ON 06-NOV-2007
     Route: 042
     Dates: start: 20071127, end: 20071127
  4. DICLOFENAC POTASSIUM [Concomitant]
  5. HYDROCHLOROTHIAZIDE [Concomitant]
  6. WELCHOL [Concomitant]
  7. VERAPAMIL [Concomitant]

REACTIONS (13)
  - COUGH [None]
  - DYSPNOEA [None]
  - BLOOD CREATININE INCREASED [None]
  - VOMITING [None]
  - PULMONARY EMBOLISM [None]
  - INTERNATIONAL NORMALISED RATIO INCREASED [None]
  - HYPOXIA [None]
  - ASPIRATION [None]
  - WHITE BLOOD CELL COUNT DECREASED [None]
  - NEUTROPHIL COUNT DECREASED [None]
  - DEHYDRATION [None]
  - RENAL FAILURE ACUTE [None]
  - DIARRHOEA [None]
